FAERS Safety Report 14919397 (Version 3)
Quarter: 2018Q3

REPORT INFORMATION
  Report Type: Report from Study
  Country: US (occurrence: US)
  Receive Date: 20180521
  Receipt Date: 20180723
  Transmission Date: 20181010
  Serious: Yes (Other)
  Sender: FDA-Public Use
  Company Number: PHEH2018US019600

PATIENT
  Sex: Male

DRUGS (1)
  1. COSENTYX [Suspect]
     Active Substance: SECUKINUMAB
     Indication: ANKYLOSING SPONDYLITIS
     Dosage: 150 MG, QW
     Route: 058

REACTIONS (6)
  - Therapeutic response shortened [Unknown]
  - Drug effect incomplete [Unknown]
  - Weight decreased [Unknown]
  - Pain [Unknown]
  - Weight fluctuation [Unknown]
  - Nervousness [Unknown]
